FAERS Safety Report 4309689-9 (Version None)
Quarter: 2004Q1

REPORT INFORMATION
  Report Type: 
  Country: None (occurrence: None)
  Receive Date: 20040302
  Receipt Date: 20040217
  Transmission Date: 20041129
  Serious: Yes (Hospitalization, Other)
  Sender: FDA-Public Use
  Company Number: 2004010558

PATIENT
  Age: 52 Year
  Sex: Female

DRUGS (3)
  1. NEURONTIN [Suspect]
     Indication: BACK PAIN
     Dosage: 200 MG (BID), ORAL
     Route: 048
     Dates: start: 20030623, end: 20030101
  2. ESTRADIOL [Concomitant]
  3. ESCITALOPRAM (ESCITALOPRAM) [Concomitant]

REACTIONS (3)
  - BLOOD DISORDER [None]
  - LEUKAEMIA [None]
  - LYMPHOMA [None]
